FAERS Safety Report 22642736 (Version 1)
Quarter: 2023Q2

REPORT INFORMATION
  Report Type: Spontaneous
  Country: US (occurrence: None)
  Receive Date: 20230627
  Receipt Date: 20230627
  Transmission Date: 20230721
  Serious: Yes (Other)
  Sender: FDA-Public Use
  Company Number: US-MLMSERVICE-20230612-4342664-1

PATIENT
  Age: 78 Year
  Sex: Male

DRUGS (5)
  1. DORZOLAMIDE\TIMOLOL [Suspect]
     Active Substance: DORZOLAMIDE\TIMOLOL
     Indication: Intraocular pressure test abnormal
     Dosage: DORZOLAMIDE-TIMOLOL 22.3-6.8 MG/ML TWICE DAILY IN BOTH EYES
     Route: 061
  2. ASPIRIN [Suspect]
     Active Substance: ASPIRIN
     Indication: Cardiovascular event prophylaxis
  3. HYDROCHLOROTHIAZIDE [Concomitant]
     Active Substance: HYDROCHLOROTHIAZIDE
     Indication: Hypertension
  4. NETARSUDIL [Concomitant]
     Active Substance: NETARSUDIL
     Indication: Open angle glaucoma
     Dosage: NETARSUDIL 0.02% DAILY IN THE LEFT EYE
     Route: 047
  5. TELMISARTAN. [Concomitant]
     Indication: Hypertension

REACTIONS (3)
  - Choroidal effusion [Recovered/Resolved]
  - Choroidal haemorrhage [Recovered/Resolved]
  - Choroidal detachment [Recovered/Resolved]
